FAERS Safety Report 5636946-6 (Version None)
Quarter: 2008Q1

REPORT INFORMATION
  Report Type: 
  Country: None (occurrence: None)
  Receive Date: 20080225
  Receipt Date: 20080215
  Transmission Date: 20080703
  Serious: Yes (Death)
  Sender: FDA-Public Use
  Company Number: US-ROCHE-511554

PATIENT
  Age: 68 Year
  Sex: Male
  Weight: 50.8 kg

DRUGS (24)
  1. METHOXY POLYETHYLENE GLYCOL-EPOETIN BETA [Suspect]
     Route: 042
     Dates: start: 20050806, end: 20060928
  2. METHOXY POLYETHYLENE GLYCOL-EPOETIN BETA [Suspect]
     Route: 042
     Dates: start: 20061003
  3. METHOXY POLYETHYLENE GLYCOL-EPOETIN BETA [Suspect]
     Route: 042
     Dates: end: 20070814
  4. METHOXY POLYETHYLENE GLYCOL-EPOETIN BETA [Suspect]
     Dosage: ADMINISTERED UNDER BA16739 PROTOCOL
     Route: 042
  5. FOLIC ACID [Concomitant]
     Dates: start: 20060101
  6. LABETALOL HCL [Concomitant]
     Dates: start: 20030304
  7. LISINOPRIL [Concomitant]
     Dates: start: 20030304
  8. LISINOPRIL [Concomitant]
     Dates: start: 20060807, end: 20070814
  9. ALEVE [Concomitant]
     Dates: start: 20060101
  10. RENAL CAPS [Concomitant]
     Dosage: TOTAL DAILY DOSE REPORTED AS 1.
     Dates: start: 20060101
  11. UNSPECIFIED DRUG [Concomitant]
     Dosage: THE DRUG WAS REPORTED AS RENAL GEL.
     Dates: start: 20030527
  12. AGGRENOX [Concomitant]
     Dates: start: 20060101
  13. LIPITOR [Concomitant]
     Dates: start: 20060801, end: 20070814
  14. CALCIUM CARBONATE [Concomitant]
     Dates: start: 20060101
  15. PLAVIX [Concomitant]
     Dates: start: 20060116, end: 20070814
  16. FAMOTIDINE [Concomitant]
     Dates: start: 20060101
  17. VITAMIN B [Concomitant]
     Dates: start: 20060101
  18. SENSIPAR [Concomitant]
     Dates: start: 20041228
  19. SENSIPAR [Concomitant]
     Dates: start: 20060731, end: 20070814
  20. ASPIRIN [Concomitant]
     Dates: start: 20060801, end: 20070814
  21. AMIODARONE HCL [Concomitant]
     Dates: start: 20070807, end: 20070814
  22. ISOSORBIDE MONONITRATE [Concomitant]
     Dates: start: 20060801, end: 20070814
  23. METOPROLOL TARTRATE [Concomitant]
     Dates: start: 20070612, end: 20070814
  24. RENAGEL [Concomitant]
     Dates: start: 20070807, end: 20070814

REACTIONS (1)
  - DEATH [None]
